FAERS Safety Report 7167658-8 (Version None)
Quarter: 2010Q4

REPORT INFORMATION
  Report Type: 
  Country: None (occurrence: None)
  Receive Date: 20101216
  Receipt Date: 20100706
  Transmission Date: 20110411
  Serious: No
  Sender: FDA-Public Use
  Company Number: A0868643A

PATIENT
  Age: 62 Year

DRUGS (1)
  1. NICOTINE POLACRILEX [Suspect]
     Dates: start: 20100704, end: 20100705

REACTIONS (2)
  - MIGRAINE [None]
  - PALPITATIONS [None]
